FAERS Safety Report 10099009 (Version 1)
Quarter: 2014Q2

REPORT INFORMATION
  Report Type: Spontaneous
  Country: US (occurrence: None)
  Receive Date: 20140422
  Receipt Date: 20140422
  Transmission Date: 20141212
  Serious: No
  Sender: FDA-Public Use
  Company Number: None

PATIENT
  Age: 50 Year
  Sex: Female
  Weight: 68.04 kg

DRUGS (1)
  1. BOTOX [Suspect]
     Indication: SKIN COSMETIC PROCEDURE
     Dosage: 40 UNITS, FACIAL AREA, INJECTIONS

REACTIONS (7)
  - Vision blurred [None]
  - Diplopia [None]
  - Strabismus [None]
  - Activities of daily living impaired [None]
  - Impaired driving ability [None]
  - Impaired work ability [None]
  - Reading disorder [None]
